FAERS Safety Report 9785783 (Version 2)
Quarter: 2014Q2

REPORT INFORMATION
  Report Type: Spontaneous
  Country: US (occurrence: US)
  Receive Date: 20131227
  Receipt Date: 20140508
  Transmission Date: 20141212
  Serious: Yes (Other)
  Sender: FDA-Public Use
  Company Number: US-BAYER-2013-156871

PATIENT
  Sex: Female

DRUGS (1)
  1. MIRENA [Suspect]
     Indication: CONTRACEPTION
     Dosage: 20 MCG/24HR, CONT
     Route: 015
     Dates: start: 201203, end: 201401

REACTIONS (9)
  - Alopecia [None]
  - Pain [None]
  - Back pain [None]
  - Ovarian cyst [None]
  - Insomnia [None]
  - Dyspareunia [None]
  - Feeling abnormal [None]
  - Device dislocation [Recovered/Resolved]
  - Procedural pain [None]
